FAERS Safety Report 25124993 (Version 1)
Quarter: 2025Q1

REPORT INFORMATION
  Report Type: Spontaneous
  Country: US (occurrence: US)
  Receive Date: 20250326
  Receipt Date: 20250326
  Transmission Date: 20250408
  Serious: No
  Sender: CALLIDITAS THERAPEUTICS AB
  Company Number: US-Calliditas-2025CAL00744

PATIENT
  Age: 43 Year
  Sex: Female

DRUGS (5)
  1. TARPEYO [Suspect]
     Active Substance: BUDESONIDE
     Indication: IgA nephropathy
     Route: 048
  2. AMLODIPINE [Concomitant]
     Active Substance: AMLODIPINE BESYLATE
  3. FAMOTIDINE [Concomitant]
     Active Substance: FAMOTIDINE
  4. ONDANSETRON [Concomitant]
     Active Substance: ONDANSETRON
  5. PREDNISONE [Concomitant]
     Active Substance: PREDNISONE

REACTIONS (1)
  - Peripheral swelling [Unknown]
